FAERS Safety Report 9415708 (Version 2)
Quarter: 2013Q3

REPORT INFORMATION
  Report Type: Spontaneous
  Country: CA (occurrence: CA)
  Receive Date: 20130723
  Receipt Date: 20130830
  Transmission Date: 20140515
  Serious: Yes (Hospitalization)
  Sender: FDA-Public Use
  Company Number: CA-ABBOTT-13P-028-1120758-00

PATIENT
  Age: 30 Year
  Sex: Female
  Weight: 77 kg

DRUGS (7)
  1. LUPRON DEPOT [Suspect]
     Indication: DYSMENORRHOEA
     Route: 030
     Dates: start: 20121109, end: 20130122
  2. LUPRON DEPOT [Suspect]
     Indication: HAEMORRHAGE
  3. CYKLOKAPRON [Concomitant]
     Indication: PRODUCT USED FOR UNKNOWN INDICATION
     Dosage: 3 TABLETS STAT THEN 2 TO 3 TABLETS EVERY 8 HOURS AS NEEDED - FOR MAX 48 HOURS
     Dates: start: 20121108
  4. DEXIRON [Concomitant]
     Indication: PRODUCT USED FOR UNKNOWN INDICATION
     Route: 030
     Dates: start: 20130205
  5. ESTRACE [Concomitant]
     Indication: PRODUCT USED FOR UNKNOWN INDICATION
     Dosage: 0.5 T0 1 MG ONCE DAILY AT HOUR OF SLEEP
  6. PROMETRIUM [Concomitant]
     Indication: PRODUCT USED FOR UNKNOWN INDICATION
     Dosage: AT HOUR OF SLEEP
  7. VENLAFAXINE TEVA [Concomitant]
     Indication: PRODUCT USED FOR UNKNOWN INDICATION

REACTIONS (8)
  - Arrhythmia [Unknown]
  - Palpitations [Unknown]
  - Migraine [Unknown]
  - Nausea [Unknown]
  - Injection site pain [Unknown]
  - Electrocardiogram abnormal [Unknown]
  - Injection site reaction [Unknown]
  - Myalgia [Unknown]
